FAERS Safety Report 13417737 (Version 1)
Quarter: 2017Q2

REPORT INFORMATION
  Report Type: Spontaneous
  Country: US (occurrence: US)
  Receive Date: 20170406
  Receipt Date: 20170406
  Transmission Date: 20170830
  Serious: No
  Sender: FDA-Public Use
  Company Number: US-ALLERGAN-1704609US

PATIENT
  Age: 51 Year
  Sex: Female

DRUGS (2)
  1. MESALAZINE - BP [Suspect]
     Active Substance: MESALAMINE
     Indication: COLITIS ULCERATIVE
     Dosage: 1600 MG, TID
     Route: 048
  2. MESALAZINE - BP [Suspect]
     Active Substance: MESALAMINE
     Dosage: 800 MG, TID
     Route: 048
     Dates: start: 201612

REACTIONS (1)
  - Drug ineffective [Unknown]

NARRATIVE: CASE EVENT DATE: 20170102
